FAERS Safety Report 12288381 (Version 1)
Quarter: 2016Q2

REPORT INFORMATION
  Report Type: Spontaneous
  Country: US (occurrence: US)
  Receive Date: 20160420
  Receipt Date: 20160420
  Transmission Date: 20160815
  Serious: No
  Sender: FDA-Public Use
  Company Number: US-ASTELLAS-2015US044436

PATIENT
  Age: 72 Year
  Sex: Female
  Weight: 49 kg

DRUGS (1)
  1. TACROLIMUS OINTMENT [Suspect]
     Active Substance: TACROLIMUS
     Indication: PROPHYLAXIS
     Dosage: 1/8 INCH, ONCE DAILY
     Route: 061
     Dates: start: 201509

REACTIONS (1)
  - Drug ineffective for unapproved indication [Unknown]

NARRATIVE: CASE EVENT DATE: 201509
